FAERS Safety Report 13020293 (Version 1)
Quarter: 2016Q4

REPORT INFORMATION
  Report Type: Spontaneous
  Country: US (occurrence: US)
  Receive Date: 20161212
  Receipt Date: 20161212
  Transmission Date: 20170207
  Serious: No
  Sender: FDA-Public Use
  Company Number: US-LPDUSPRD-20160151

PATIENT
  Sex: Female
  Weight: 40.82 kg

DRUGS (1)
  1. VENOFER [Suspect]
     Active Substance: IRON SUCROSE
     Dosage: 300 MG
     Route: 065
     Dates: start: 20160215

REACTIONS (2)
  - Chromaturia [Not Recovered/Not Resolved]
  - Back pain [Not Recovered/Not Resolved]
